FAERS Safety Report 9848073 (Version 1)
Quarter: 2014Q1

REPORT INFORMATION
  Report Type: Spontaneous
  Country: US (occurrence: None)
  Receive Date: 20140124
  Receipt Date: 20140124
  Transmission Date: 20141002
  Serious: Yes (Other)
  Sender: FDA-Public Use
  Company Number: None

PATIENT
  Age: 50 Year
  Sex: Female
  Weight: 77.11 kg

DRUGS (4)
  1. ESCITALOPRAM 20MG [Suspect]
     Indication: ANXIETY
     Dosage: 60 TABLETS, ONE MONTH,3 REFILLS?2 PILLS?ONCE DAILY?TAKEN BY MOUTH
     Route: 048
  2. ESCITALOPRAM 20MG [Suspect]
     Indication: TREMOR
     Dosage: 60 TABLETS, ONE MONTH,3 REFILLS?2 PILLS?ONCE DAILY?TAKEN BY MOUTH
     Route: 048
  3. ESCITALOPRAM 20MG [Suspect]
     Indication: HEART RATE INCREASED
     Dosage: 60 TABLETS, ONE MONTH,3 REFILLS?2 PILLS?ONCE DAILY?TAKEN BY MOUTH
     Route: 048
  4. ESCITALOPRAM 20MG [Suspect]
     Indication: DYSPNOEA
     Dosage: 60 TABLETS, ONE MONTH,3 REFILLS?2 PILLS?ONCE DAILY?TAKEN BY MOUTH
     Route: 048

REACTIONS (2)
  - Medication error [None]
  - Inappropriate schedule of drug administration [None]
